FAERS Safety Report 12955053 (Version 1)
Quarter: 2016Q4

REPORT INFORMATION
  Report Type: Spontaneous
  Country: US (occurrence: US)
  Receive Date: 20161118
  Receipt Date: 20161118
  Transmission Date: 20170207
  Serious: No
  Sender: FDA-Public Use
  Company Number: US-SHIRE-US201616821

PATIENT
  Age: 74 Year
  Sex: Female
  Weight: 58.5 kg

DRUGS (2)
  1. XIIDRA [Suspect]
     Active Substance: LIFITEGRAST
     Indication: DRY EYE
     Dosage: 1 GTT, 2X/DAY:BID
     Route: 047
     Dates: start: 201611
  2. LISINOPRIL. [Concomitant]
     Active Substance: LISINOPRIL
     Indication: HYPERTENSION
     Dosage: 5 MG, 1X/DAY:QD
     Route: 065
     Dates: start: 201610

REACTIONS (2)
  - Ocular hyperaemia [Unknown]
  - Hypertension [Unknown]

NARRATIVE: CASE EVENT DATE: 201611
